FAERS Safety Report 20349788 (Version 1)
Quarter: 2022Q1

REPORT INFORMATION
  Report Type: Spontaneous
  Country: US (occurrence: None)
  Receive Date: 20220117
  Receipt Date: 20220117
  Transmission Date: 20220423
  Serious: Yes (Hospitalization)
  Sender: FDA-Public Use
  Company Number: None

PATIENT
  Age: 82 Year
  Sex: Female

DRUGS (1)
  1. MEKINIST [Suspect]
     Active Substance: TRAMETINIB DIMETHYL SULFOXIDE
     Indication: Gastric cancer
     Dosage: FREQUENCY : DAILY;?
     Route: 048
     Dates: start: 20210427, end: 20220110

REACTIONS (2)
  - Joint swelling [None]
  - Gait inability [None]

NARRATIVE: CASE EVENT DATE: 20220110
